FAERS Safety Report 13546169 (Version 1)
Quarter: 2017Q2

REPORT INFORMATION
  Report Type: Spontaneous
  Country: US (occurrence: US)
  Receive Date: 20170515
  Receipt Date: 20170515
  Transmission Date: 20170830
  Serious: No
  Sender: FDA-Public Use
  Company Number: US-RAPTOR PHARMACEUTICALS, INC.-RAP-001083-2016

PATIENT
  Age: 3 Year
  Sex: Female
  Weight: 10.7 kg

DRUGS (7)
  1. PROCYSBI DELAYED-RELEASE [Suspect]
     Active Substance: CYSTEAMINE BITARTRATE
     Indication: CYSTINOSIS
     Dosage: 400 MG, TWICE DAILY
     Route: 048
     Dates: start: 201511, end: 201512
  2. CYSTINE EYE DROPS [Concomitant]
     Indication: CYSTINOSIS
     Dosage: 1 DROP FOR BOTH EYES, QID
     Route: 031
     Dates: start: 20151118
  3. POTASSIUM CHLORIDE. [Concomitant]
     Active Substance: POTASSIUM CHLORIDE
     Indication: HYPOKALAEMIA
     Dosage: 26.67 MEQ, QID
     Route: 048
     Dates: start: 20141009
  4. CALCIUM CARBONATE. [Concomitant]
     Active Substance: CALCIUM CARBONATE
     Indication: HYPOCALCAEMIA
     Dosage: 1.5 ML, TID
     Route: 048
     Dates: start: 20141011
  5. POTASSIUM CITRATE. [Concomitant]
     Active Substance: POTASSIUM CITRATE
     Indication: HYPOKALAEMIA
     Dosage: 8 ML, TID
     Route: 048
     Dates: start: 20141010
  6. CARNITOR [Concomitant]
     Active Substance: LEVOCARNITINE
     Indication: CARNITINE DEFICIENCY
     Dosage: 300 MG, BID
     Route: 048
     Dates: start: 20141011
  7. SODIUM PHOSPHATE [Concomitant]
     Active Substance: SODIUM PHOSPHATE
     Indication: HYPONATRAEMIA
     Dosage: 5 MMOL, TID
     Route: 048
     Dates: start: 20141009

REACTIONS (3)
  - Thirst [Recovered/Resolved]
  - Product use complaint [Recovered/Resolved]
  - Underdose [Recovered/Resolved]

NARRATIVE: CASE EVENT DATE: 20151120
